FAERS Safety Report 19264925 (Version 3)
Quarter: 2021Q4

REPORT INFORMATION
  Report Type: Spontaneous
  Country: US (occurrence: US)
  Receive Date: 20210517
  Receipt Date: 20211213
  Transmission Date: 20220303
  Serious: Yes (Other)
  Sender: FDA-Public Use
  Company Number: US-SA-SAC20210512000407

PATIENT
  Age: 35 Year
  Sex: Male

DRUGS (1)
  1. DUPIXENT [Suspect]
     Active Substance: DUPILUMAB
     Indication: Dermatitis atopic
     Dosage: 300 MG, QOW
     Route: 058
     Dates: start: 20200901

REACTIONS (4)
  - Fungal infection [Unknown]
  - Ocular hyperaemia [Recovered/Resolved]
  - Rash macular [Unknown]
  - Infection [Unknown]

NARRATIVE: CASE EVENT DATE: 20210501
